FAERS Safety Report 8470673-5 (Version None)
Quarter: 2012Q2

REPORT INFORMATION
  Report Type: 
  Country: None (occurrence: None)
  Receive Date: 20120627
  Receipt Date: 20120627
  Transmission Date: 20120825
  Serious: Yes (Hospitalization)
  Sender: FDA-Public Use
  Company Number: PHHO2012DE009063

PATIENT
  Age: 35 Year
  Sex: Male
  Weight: 70.8 kg

DRUGS (3)
  1. MYCOPHENOLIC ACID [Suspect]
     Indication: PANCREAS TRANSPLANT
     Dosage: 1440 MG, QD
     Route: 048
     Dates: start: 20111112
  2. TACROLIMUS [Concomitant]
     Dosage: 14 MG, QD
     Route: 048
     Dates: start: 20111112
  3. PREDNISOLONE [Concomitant]
     Dosage: 25 MG, QD
     Route: 048
     Dates: start: 20111112

REACTIONS (2)
  - ABDOMINAL WALL DISORDER [None]
  - WOUND DEHISCENCE [None]
